FAERS Safety Report 18179819 (Version 1)
Quarter: 2020Q3

REPORT INFORMATION
  Report Type: Spontaneous
  Country: US (occurrence: US)
  Receive Date: 20200820
  Receipt Date: 20200820
  Transmission Date: 20201103
  Serious: Yes (Hospitalization)
  Sender: FDA-Public Use
  Company Number: None

PATIENT
  Age: 67 Year
  Sex: Female
  Weight: 43.2 kg

DRUGS (10)
  1. ATORVASTATIN [Concomitant]
     Active Substance: ATORVASTATIN
     Dates: start: 20200201
  2. ELIQUIS [Concomitant]
     Active Substance: APIXABAN
     Dates: start: 20200302
  3. ROXICODONE [Concomitant]
     Active Substance: OXYCODONE HYDROCHLORIDE
     Dates: start: 20200709
  4. TAXOL [Suspect]
     Active Substance: PACLITAXEL
  5. PEMBROLIZUMAB. [Suspect]
     Active Substance: PEMBROLIZUMAB
     Indication: CERVIX CARCINOMA
     Dosage: ?          OTHER FREQUENCY:EVERY 21 DAYS;?
     Route: 042
     Dates: start: 20200618
  6. LEVOTHYROXINE. [Concomitant]
     Active Substance: LEVOTHYROXINE
     Dates: start: 20200301
  7. CLARITIN [Concomitant]
     Active Substance: LORATADINE
     Dates: start: 20200709
  8. CARBOPLATIN. [Suspect]
     Active Substance: CARBOPLATIN
  9. MIRTAZAPINE. [Concomitant]
     Active Substance: MIRTAZAPINE
     Dates: start: 20200709
  10. ALENDRONATE [Concomitant]
     Active Substance: ALENDRONATE SODIUM
     Dates: start: 20200201

REACTIONS (3)
  - Tachycardia [None]
  - Arrhythmia [None]
  - Atrial fibrillation [None]

NARRATIVE: CASE EVENT DATE: 20200819
